FAERS Safety Report 9066283 (Version 1)
Quarter: 2013Q1

REPORT INFORMATION
  Report Type: Report from Study
  Country: US (occurrence: US)
  Receive Date: 20130131
  Receipt Date: 20130131
  Transmission Date: 20140127
  Serious: No
  Sender: FDA-Public Use
  Company Number: US-ABBOTT-12P-163-1016843-00

PATIENT
  Sex: Male

DRUGS (2)
  1. HUMIRA [Suspect]
     Indication: PSORIASIS
     Dates: start: 201201, end: 201205
  2. HUMIRA [Suspect]
     Dates: start: 201206

REACTIONS (2)
  - Off label use [Not Recovered/Not Resolved]
  - Hepatic enzyme increased [Recovered/Resolved]
